FAERS Safety Report 4645293-0 (Version None)
Quarter: 2005Q2

REPORT INFORMATION
  Report Type: 
  Country: None (occurrence: None)
  Receive Date: 20050331
  Receipt Date: 20050111
  Transmission Date: 20051028
  Serious: No
  Sender: FDA-Public Use
  Company Number: 03P-163-0245957-00

PATIENT
  Age: 77 Year
  Sex: Female
  Weight: 56.246 kg

DRUGS (15)
  1. HUMIRA [Suspect]
     Indication: RHEUMATOID ARTHRITIS
     Dosage: 40 MG, 1 IN 2 WK, SUBCUTANEOUS
     Route: 058
     Dates: start: 20031005
  2. ROFECOXIB [Concomitant]
  3. METHOTREXATE SODIUM [Concomitant]
  4. LANSOPRAZOLE [Concomitant]
  5. FOLIC ACID [Concomitant]
  6. ALENDRONATE SODIUM [Concomitant]
  7. TOCOPHEROL CONCENTRATE CAP [Concomitant]
  8. ASCORBIC ACID [Concomitant]
  9. CYANOCOBALAMIN [Concomitant]
  10. CALCIUM GLUCONATE [Concomitant]
  11. IRON [Concomitant]
  12. ATENOLOL [Concomitant]
  13. PRAVASTATIN SODIUM [Concomitant]
  14. LOTREL [Concomitant]
  15. VITAMINS [Concomitant]

REACTIONS (7)
  - DRY EYE [None]
  - DRY MOUTH [None]
  - DRY SKIN [None]
  - FATIGUE [None]
  - PRURITUS [None]
  - TONGUE COATED [None]
  - TONGUE DISCOLOURATION [None]
